FAERS Safety Report 24550962 (Version 4)
Quarter: 2024Q4

REPORT INFORMATION
  Report Type: Spontaneous
  Country: US (occurrence: US)
  Receive Date: 20241025
  Receipt Date: 20241111
  Transmission Date: 20250115
  Serious: No
  Sender: CALLIDITAS THERAPEUTICS AB
  Company Number: US-Calliditas-2024CAL02333

PATIENT
  Age: 34 Year
  Sex: Male

DRUGS (7)
  1. TARPEYO [Suspect]
     Active Substance: BUDESONIDE
     Indication: Haematuria
     Dosage: DRUG INTERRUPTED. 10/28: MISSED DOSES 10/16: MISSED DOSES
     Route: 048
     Dates: start: 20240926, end: 20241029
  2. AMLODIPINE [Concomitant]
     Active Substance: AMLODIPINE BESYLATE
  3. ATORVASTATIN [Concomitant]
     Active Substance: ATORVASTATIN
  4. LOSARTAN [Concomitant]
     Active Substance: LOSARTAN
  5. FISH OIL [Concomitant]
     Active Substance: FISH OIL
  6. KLONOPIN [Concomitant]
     Active Substance: CLONAZEPAM
  7. METAXALONE [Concomitant]
     Active Substance: METAXALONE

REACTIONS (6)
  - Palpitations [Unknown]
  - Joint swelling [Unknown]
  - Peripheral swelling [Unknown]
  - Cardiac flutter [Unknown]
  - Blood potassium increased [Unknown]
  - Product dose omission issue [Unknown]

NARRATIVE: CASE EVENT DATE: 20241001
